FAERS Safety Report 17656075 (Version 1)
Quarter: 2020Q2

REPORT INFORMATION
  Report Type: Spontaneous
  Country: US (occurrence: US)
  Receive Date: 20200409
  Receipt Date: 20200409
  Transmission Date: 20200713
  Serious: Yes (Life-Threatening, Hospitalization)
  Sender: FDA-Public Use
  Company Number: None

PATIENT
  Age: 72 Year
  Sex: Male
  Weight: 63 kg

DRUGS (1)
  1. APIXABAN (APIXABAN 5MG TAB) [Suspect]
     Active Substance: APIXABAN
     Indication: ATRIAL FIBRILLATION
     Route: 048
     Dates: start: 20190909, end: 20200214

REACTIONS (5)
  - Haemorrhoids [None]
  - Diverticulitis [None]
  - Gastric ulcer [None]
  - Oesophagitis [None]
  - Gastric haemorrhage [None]

NARRATIVE: CASE EVENT DATE: 20200214
